FAERS Safety Report 6976077-6 (Version None)
Quarter: 2010Q3

REPORT INFORMATION
  Report Type: 
  Country: None (occurrence: None)
  Receive Date: 20100910
  Receipt Date: 20100906
  Transmission Date: 20110219
  Serious: Yes (Life-Threatening)
  Sender: FDA-Public Use
  Company Number: FR-ASTRAZENECA-2010SE41882

PATIENT
  Age: 20268 Day
  Sex: Male

DRUGS (7)
  1. DIPRIVAN [Suspect]
     Route: 042
     Dates: start: 20100819
  2. CEFTRIAXONE WINTHROP [Suspect]
     Route: 042
     Dates: start: 20100819, end: 20100819
  3. SOLU-MEDROL [Suspect]
     Route: 042
     Dates: start: 20100819, end: 20100819
  4. SUPRANE [Suspect]
     Route: 055
     Dates: start: 20100819, end: 20100819
  5. MIDAZOLAM PANPHARMA [Suspect]
     Route: 042
     Dates: start: 20100819, end: 20100819
  6. SUFENTA PRESERVATIVE FREE [Suspect]
     Route: 042
     Dates: start: 20100819, end: 20100819
  7. ATRACRIUM HOSPIRA [Suspect]
     Route: 042
     Dates: start: 20100819, end: 20100819

REACTIONS (1)
  - CIRCULATORY COLLAPSE [None]
